FAERS Safety Report 7325926-0 (Version None)
Quarter: 2011Q1

REPORT INFORMATION
  Report Type: 
  Country: None (occurrence: None)
  Receive Date: 20110302
  Receipt Date: 20110220
  Transmission Date: 20110831
  Serious: Yes (Other)
  Sender: FDA-Public Use
  Company Number: BE-ABBOTT-11P-013-0706362-00

PATIENT
  Sex: Male

DRUGS (1)
  1. HUMIRA [Suspect]
     Indication: PSORIATIC ARTHROPATHY
     Dates: start: 20100128, end: 20101014

REACTIONS (5)
  - PARADOXICAL DRUG REACTION [None]
  - HEADACHE [None]
  - CHILLS [None]
  - HYPERSENSITIVITY [None]
  - PSORIASIS [None]
